FAERS Safety Report 7872564-7 (Version None)
Quarter: 2011Q4

REPORT INFORMATION
  Report Type: 
  Country: None (occurrence: None)
  Receive Date: 20111030
  Receipt Date: 20110428
  Transmission Date: 20120403
  Serious: No
  Sender: FDA-Public Use
  Company Number: US-AMGEN-USASP2011022255

PATIENT
  Age: 24 Year
  Sex: Female

DRUGS (2)
  1. ENBREL [Suspect]
     Indication: RHEUMATOID ARTHRITIS
     Dosage: 50 MG, QWK
     Dates: start: 20110409
  2. ARAVA [Concomitant]

REACTIONS (7)
  - CHILLS [None]
  - INJECTION SITE ERYTHEMA [None]
  - BLOOD GLUCOSE DECREASED [None]
  - NAUSEA [None]
  - INJECTION SITE PRURITUS [None]
  - ASTHENIA [None]
  - HEADACHE [None]
